FAERS Safety Report 10917931 (Version 1)
Quarter: 2015Q1

REPORT INFORMATION
  Report Type: Spontaneous
  Country: US (occurrence: US)
  Receive Date: 20150316
  Receipt Date: 20150316
  Transmission Date: 20150721
  Serious: No
  Sender: FDA-Public Use
  Company Number: US-PFIZER INC-2015086366

PATIENT
  Age: 62 Year
  Sex: Male

DRUGS (16)
  1. LYRICA [Suspect]
     Active Substance: PREGABALIN
     Indication: RADICULITIS
  2. LOTREL [Concomitant]
     Active Substance: AMLODIPINE BESYLATE\BENAZEPRIL HYDROCHLORIDE
     Dosage: 1 DF, DAILY(AMLODIPINE 5MG, BENAZEPRILL 10MG )
     Route: 048
  3. LYRICA [Suspect]
     Active Substance: PREGABALIN
     Indication: POST LAMINECTOMY SYNDROME
     Dosage: 50 MG, 2X/DAY
     Route: 048
     Dates: start: 20150219
  4. CORAL CALCIUM ORAL [Concomitant]
     Dosage: 1 DF, 2X/DAY
     Route: 048
  5. INDOCIN [Concomitant]
     Active Substance: INDOMETHACIN\INDOMETHACIN SODIUM
     Dosage: 25 MG, 3X/DAY(1 CAP THREE TIMES DAILY X 7 DAYS)
  6. OMEGA-3 FATTY ACIDS-FISH OIL [Concomitant]
     Dosage: 200 MG, DAILY (OMEGA-3 FATTY ACIDS 396, FISH OIL 1)
     Route: 048
  7. SAW PALMETTO [Concomitant]
     Active Substance: SAW PALMETTO
     Dosage: 1000MG (500MG CAPSULE), 2X/DAY
     Route: 048
  8. NORCO [Concomitant]
     Active Substance: ACETAMINOPHEN\HYDROCODONE BITARTRATE
     Indication: PAIN
     Dosage: UNK(HYDROCODONE 5MG, ACETAMINOPHEN 325MG TAKE 1-2 TABLETS BY MOUTH EVERY 4 TO 6 HOURS AS NEEDED)
  9. ALPHA LIPOIC ACID [Concomitant]
     Active Substance: .ALPHA.-LIPOIC ACID
     Dosage: 600 MG, DAILY(100MG CAPSULE, 6 CAPSULES BY MOUTH DAILY)
     Route: 048
  10. RED YEAST RICE [Concomitant]
     Active Substance: DIETARY SUPPLEMENT
     Dosage: 1200 MG, DAILY(600MG CAPSULE, 2 CAPSULES BY MOUTH DAILY)
     Route: 048
  11. FLEXERIL [Concomitant]
     Active Substance: CYCLOBENZAPRINE HYDROCHLORIDE
     Dosage: 10 MG, 3X/DAY(AS NEEDED)
     Route: 048
  12. GARLIC. [Concomitant]
     Active Substance: GARLIC
     Dosage: 1 DF, DAILY
     Route: 048
  13. CIALIS [Concomitant]
     Active Substance: TADALAFIL
     Dosage: 20 MG, DAILY(DAILY AS NEEDED)
     Route: 048
  14. ZYLOPRIM [Concomitant]
     Active Substance: ALLOPURINOL
     Dosage: 100 MG, DAILY
     Route: 048
  15. VITAMIN D3 [Concomitant]
     Active Substance: CHOLECALCIFEROL
     Dosage: 1000 IU, DAILY
     Route: 048
  16. VOLTAREN [Concomitant]
     Active Substance: DICLOFENAC SODIUM
     Dosage: UNK (1% TOPICAL GEL)

REACTIONS (1)
  - Pain [Unknown]
